FAERS Safety Report 6488091-8 (Version None)
Quarter: 2009Q4

REPORT INFORMATION
  Report Type: 
  Country: None (occurrence: None)
  Receive Date: 20091210
  Receipt Date: 20091202
  Transmission Date: 20100525
  Serious: Yes (Hospitalization)
  Sender: FDA-Public Use
  Company Number: IT-TEVA-216830ISR

PATIENT
  Sex: Male

DRUGS (4)
  1. GABAPENTIN [Suspect]
     Indication: DEPRESSION
     Route: 048
  2. RISPERIDONE [Suspect]
     Indication: DEPRESSION
     Route: 048
  3. LEVOMEPROMAZINE [Suspect]
     Indication: DEPRESSION
     Route: 048
  4. DIAZEPAM [Concomitant]
     Route: 048

REACTIONS (2)
  - DRUG ABUSE [None]
  - INTENTIONAL SELF-INJURY [None]
